FAERS Safety Report 9349970 (Version 1)
Quarter: 2013Q2

REPORT INFORMATION
  Report Type: Spontaneous
  Country: DE (occurrence: DE)
  Receive Date: 20130614
  Receipt Date: 20130614
  Transmission Date: 20140414
  Serious: Yes (Other)
  Sender: FDA-Public Use
  Company Number: PHHY2013DE059952

PATIENT
  Sex: Male

DRUGS (1)
  1. EXFORGE [Suspect]
     Dosage: 1 DF (160 MG VALS AND 10 MG AMLO)

REACTIONS (3)
  - Retinal vein occlusion [Unknown]
  - Oedema [Unknown]
  - Blood pressure inadequately controlled [Unknown]
